FAERS Safety Report 21685723 (Version 2)
Quarter: 2022Q4

REPORT INFORMATION
  Report Type: Report from Study
  Country: ZA (occurrence: ZA)
  Receive Date: 20221206
  Receipt Date: 20221217
  Transmission Date: 20230112
  Serious: Yes (Hospitalization, Disabling, Other)
  Sender: FDA-Public Use
  Company Number: ZA-002147023-NVSC2022ZA279251

PATIENT
  Age: 49 Year
  Sex: Male

DRUGS (1)
  1. FINGOLIMOD HYDROCHLORIDE [Suspect]
     Active Substance: FINGOLIMOD HYDROCHLORIDE
     Indication: Relapsing-remitting multiple sclerosis
     Dosage: 0.5 MG, QD
     Route: 048
     Dates: start: 20220705

REACTIONS (7)
  - Road traffic accident [Unknown]
  - Clavicle fracture [Unknown]
  - Radius fracture [Unknown]
  - Wrist fracture [Unknown]
  - Loss of consciousness [Unknown]
  - Limb injury [Unknown]
  - Emotional distress [Unknown]

NARRATIVE: CASE EVENT DATE: 20221130
